FAERS Safety Report 5131117-4 (Version None)
Quarter: 2006Q4

REPORT INFORMATION
  Report Type: 
  Country: None (occurrence: None)
  Receive Date: 20061016
  Receipt Date: 20061002
  Transmission Date: 20070319
  Serious: Yes (Other)
  Sender: FDA-Public Use
  Company Number: 2006123335

PATIENT
  Sex: Female
  Weight: 2.46 kg

DRUGS (3)
  1. METHYLPREDNISOLONE SODIUM SUCCINATE [Suspect]
     Indication: BACTERIAL INFECTION
  2. AZATHIOPRINE [Suspect]
     Indication: CYSTIC FIBROSIS
  3. CYCLOSPORINE [Suspect]
     Indication: CYSTIC FIBROSIS

REACTIONS (4)
  - DRUG EXPOSURE DURING PREGNANCY [None]
  - INDUCED LABOUR [None]
  - PREMATURE BABY [None]
  - PULMONARY FUNCTION TEST DECREASED [None]
